FAERS Safety Report 15377135 (Version 14)
Quarter: 2019Q2

REPORT INFORMATION
  Report Type: Report from Study
  Country: JP (occurrence: JP)
  Receive Date: 20180913
  Receipt Date: 20190509
  Transmission Date: 20190711
  Serious: No
  Sender: FDA-Public Use
  Company Number: JP-UCBSA-2018041179

PATIENT
  Age: 43 Year
  Sex: Female
  Weight: 67 kg

DRUGS (16)
  1. BLINDED PLACEBO [Suspect]
     Active Substance: INVESTIGATIONAL PRODUCT
     Dosage: 150 MG, 2X/DAY (BID)
     Route: 048
     Dates: start: 20180822, end: 20180828
  2. LACOSAMIDE VS. PLACEBO [Suspect]
     Active Substance: LACOSAMIDE
     Dosage: 200 MG, 2X/DAY (BID)
     Route: 048
     Dates: start: 20180829, end: 20190219
  3. BLINDED PLACEBO [Suspect]
     Active Substance: INVESTIGATIONAL PRODUCT
     Dosage: 200 MG, 2X/DAY (BID)
     Route: 048
     Dates: start: 20180829, end: 20190219
  4. BLINDED LACOSAMIDE [Suspect]
     Active Substance: LACOSAMIDE
     Dosage: 100 MG, 2X/DAY (BID)
     Route: 048
     Dates: start: 20180814, end: 20180821
  5. LACOSAMIDE VS. PLACEBO [Suspect]
     Active Substance: LACOSAMIDE
     Dosage: 150 MG, 2X/DAY (BID)
     Route: 048
     Dates: start: 20180822, end: 20180828
  6. FYCOMPA [Concomitant]
     Active Substance: PERAMPANEL
     Indication: EPILEPSY
     Dosage: 4 MG, ONCE DAILY (QD)
     Route: 048
     Dates: start: 20180427
  7. BLINDED PLACEBO [Suspect]
     Active Substance: INVESTIGATIONAL PRODUCT
     Dosage: 100 MG, 2X/DAY (BID)
     Route: 048
     Dates: start: 20180814, end: 20180821
  8. BLINDED LACOSAMIDE [Suspect]
     Active Substance: LACOSAMIDE
     Indication: EPILEPSY
     Dosage: 50 MG, 2X/DAY (BID)
     Route: 048
     Dates: start: 20180807, end: 20180813
  9. BLINDED PLACEBO [Suspect]
     Active Substance: INVESTIGATIONAL PRODUCT
     Indication: EPILEPSY
     Dosage: 50 MG, 2X/DAY (BID)
     Route: 048
     Dates: start: 20180807, end: 20180813
  10. BLINDED LACOSAMIDE [Suspect]
     Active Substance: LACOSAMIDE
     Dosage: 150 MG, 2X/DAY (BID)
     Route: 048
     Dates: start: 20180822, end: 20180828
  11. DEPAKENE-R [Concomitant]
     Active Substance: VALPROATE SODIUM
     Dosage: 2X/DAY (BID), 300 MG QAM AND 400 MG QPM
     Route: 048
     Dates: start: 20190220
  12. LACOSAMIDE VS. PLACEBO [Suspect]
     Active Substance: LACOSAMIDE
     Indication: EPILEPSY
     Dosage: 50 MG, 2X/DAY (BID)
     Route: 048
     Dates: start: 20180807, end: 20180813
  13. LACOSAMIDE VS. PLACEBO [Suspect]
     Active Substance: LACOSAMIDE
     Dosage: 100 MG, 2X/DAY (BID)
     Route: 048
     Dates: start: 20180814, end: 20180821
  14. BLINDED LACOSAMIDE [Suspect]
     Active Substance: LACOSAMIDE
     Dosage: 200 MG, 2X/DAY (BID)
     Route: 048
     Dates: start: 20180829, end: 20190219
  15. DEPAKENE-R [Concomitant]
     Active Substance: VALPROATE SODIUM
     Indication: EPILEPSY
     Dosage: 800 MG, 2X/DAY (BID)
     Route: 048
     Dates: start: 20170518, end: 20190219
  16. MYSTAN [Concomitant]
     Active Substance: CLOBAZAM
     Indication: EPILEPSY
     Dosage: 10 MG, ONCE DAILY (QD)
     Route: 048
     Dates: start: 20180601

REACTIONS (1)
  - Sinus bradycardia [Not Recovered/Not Resolved]

NARRATIVE: CASE EVENT DATE: 20180904
